FAERS Safety Report 7502467-9 (Version None)
Quarter: 2011Q2

REPORT INFORMATION
  Report Type: 
  Country: None (occurrence: None)
  Receive Date: 20110525
  Receipt Date: 20110513
  Transmission Date: 20111010
  Serious: Yes (Hospitalization, Other)
  Sender: FDA-Public Use
  Company Number: NO-JNJFOC-20110505604

PATIENT
  Sex: Male
  Weight: 80 kg

DRUGS (5)
  1. MORFINE [Concomitant]
     Indication: PAIN
     Route: 048
  2. ABIRATERONE ACETATE [Suspect]
     Route: 048
  3. ABIRATERONE ACETATE [Suspect]
     Indication: PROSTATE CANCER METASTATIC
     Route: 048
     Dates: start: 20110329, end: 20110429
  4. PREDNISOLONE [Suspect]
     Indication: PROSTATE CANCER METASTATIC
     Route: 048
     Dates: start: 20081013
  5. PANTOPRAZOLE [Concomitant]
     Indication: PROPHYLAXIS
     Route: 048

REACTIONS (4)
  - VOMITING [None]
  - CANCER PAIN [None]
  - NAUSEA [None]
  - LIVER FUNCTION TEST ABNORMAL [None]
